FAERS Safety Report 10413248 (Version 1)
Quarter: 2014Q2

REPORT INFORMATION
  Report Type: Spontaneous
  Country: US (occurrence: None)
  Receive Date: 20140530
  Receipt Date: 20140530
  Transmission Date: 20141212
  Serious: No
  Sender: FDA-Public Use
  Company Number: 225926

PATIENT
  Sex: Female

DRUGS (1)
  1. PICATO (INGENOL MEBUTATE) (0.05 %, GEL) [Suspect]
     Indication: SKIN CANCER
     Dosage: (1 DAY AND OVER A FEW MONTH^S TIME)
     Dates: start: 20140202

REACTIONS (4)
  - Incorrect drug administration duration [None]
  - Off label use [None]
  - Incorrect dose administered [None]
  - Product packaging quantity issue [None]
